FAERS Safety Report 4352122-1 (Version None)
Quarter: 2004Q2

REPORT INFORMATION
  Report Type: 
  Country: None (occurrence: None)
  Receive Date: 20040428
  Receipt Date: 20040414
  Transmission Date: 20050107
  Serious: Yes (Hospitalization)
  Sender: FDA-Public Use
  Company Number: 2004S1000021

PATIENT
  Age: 45 Year
  Sex: Male
  Weight: 79.3795 kg

DRUGS (6)
  1. OXANDRIN [Suspect]
     Indication: WEIGHT DECREASED
     Dosage: 5 MG; BID;UNKNOWN; UNKNOWN
     Dates: start: 20020726, end: 20020823
  2. OXANDRIN [Suspect]
     Indication: WEIGHT DECREASED
     Dosage: 5 MG; BID;UNKNOWN; UNKNOWN
     Dates: start: 20040101, end: 20040101
  3. OXANDRIN [Suspect]
     Indication: WEIGHT DECREASED
     Dosage: 5 MG; BID;UNKNOWN; UNKNOWN
     Dates: start: 20040401
  4. COMBIVIR [Suspect]
     Indication: HIV INFECTION
     Dates: start: 20020101, end: 20040101
  5. ANDROGEL [Concomitant]
  6. DEPO-TESTOSTERONE [Concomitant]

REACTIONS (2)
  - CARDIOMYOPATHY [None]
  - PALPITATIONS [None]
